FAERS Safety Report 24727680 (Version 2)
Quarter: 2024Q4

REPORT INFORMATION
  Report Type: Spontaneous
  Country: BR (occurrence: BR)
  Receive Date: 20241212
  Receipt Date: 20241231
  Transmission Date: 20250115
  Serious: Yes (Other)
  Sender: BIOGEN
  Company Number: BR-BIOGEN-2024BI01293372

PATIENT
  Sex: Female
  Weight: 76 kg

DRUGS (4)
  1. AVONEX [Suspect]
     Active Substance: INTERFERON BETA-1A
     Indication: Multiple sclerosis
     Dosage: 30MCG/0.5ML
     Route: 050
     Dates: start: 201602, end: 2022
  2. AVONEX [Suspect]
     Active Substance: INTERFERON BETA-1A
     Dosage: 30MCG/0.5MGL- SOME WEEKS SHE WAS USING IT AND SOME WEEKS SHE DIDN^T WAS NOT
     Route: 050
     Dates: start: 2022, end: 2024
  3. AVONEX [Suspect]
     Active Substance: INTERFERON BETA-1A
  4. AVONEX [Suspect]
     Active Substance: INTERFERON BETA-1A

REACTIONS (1)
  - Epilepsy [Unknown]

NARRATIVE: CASE EVENT DATE: 20230101
